FAERS Safety Report 7149898-7 (Version None)
Quarter: 2010Q4

REPORT INFORMATION
  Report Type: 
  Country: None (occurrence: None)
  Receive Date: 20101210
  Receipt Date: 20101202
  Transmission Date: 20110411
  Serious: No
  Sender: FDA-Public Use
  Company Number: US-BIOGENIDEC-2010BI042712

PATIENT
  Age: 61 Year
  Sex: Female

DRUGS (2)
  1. TYSABRI [Suspect]
     Indication: MULTIPLE SCLEROSIS
     Route: 042
     Dates: start: 20070612
  2. BENADRYL [Concomitant]
     Indication: PREMEDICATION

REACTIONS (4)
  - EMOTIONAL DISTRESS [None]
  - FATIGUE [None]
  - MOBILITY DECREASED [None]
  - SNEEZING [None]
